FAERS Safety Report 5870566-3 (Version None)
Quarter: 2008Q3

REPORT INFORMATION
  Report Type: 
  Country: None (occurrence: None)
  Receive Date: 20080829
  Receipt Date: 20080819
  Transmission Date: 20090109
  Serious: Yes (Hospitalization)
  Sender: FDA-Public Use
  Company Number: 2008BI011536

PATIENT
  Age: 63 Year
  Sex: Female

DRUGS (1)
  1. AVONEX [Suspect]
     Indication: MULTIPLE SCLEROSIS
     Dosage: IM
     Route: 030
     Dates: start: 20010612

REACTIONS (4)
  - KYPHOSCOLIOSIS [None]
  - NERVE COMPRESSION [None]
  - POST PROCEDURAL COMPLICATION [None]
  - SPINAL COLUMN STENOSIS [None]
